FAERS Safety Report 6899105-5 (Version None)
Quarter: 2010Q3

REPORT INFORMATION
  Report Type: 
  Country: None (occurrence: None)
  Receive Date: 20100802
  Receipt Date: 20080118
  Transmission Date: 20110219
  Serious: No
  Sender: FDA-Public Use
  Company Number: US-PFIZER INC-2007073953

PATIENT
  Age: 35 Year
  Sex: Female

DRUGS (5)
  1. LYRICA [Suspect]
  2. LUNESTA [Suspect]
  3. STADOL [Concomitant]
  4. VICODIN [Concomitant]
  5. ACTIQ [Concomitant]

REACTIONS (1)
  - RESTLESS LEGS SYNDROME [None]
